FAERS Safety Report 7135335-5 (Version None)
Quarter: 2010Q4

REPORT INFORMATION
  Report Type: 
  Country: None (occurrence: None)
  Receive Date: 20101203
  Receipt Date: 20101129
  Transmission Date: 20110411
  Serious: No
  Sender: FDA-Public Use
  Company Number: JP-PFIZER INC-2010157958

PATIENT
  Age: 61 Year
  Sex: Male
  Weight: 55 kg

DRUGS (11)
  1. VFEND [Suspect]
     Indication: FUNGAL INFECTION
     Dosage: 200 MG, 2X/DAY
     Route: 041
     Dates: start: 20101118, end: 20101125
  2. VFEND [Suspect]
     Indication: SYSTEMIC MYCOSIS
  3. SAXIZON [Concomitant]
     Dosage: 500 MG/DAY, FREQUENCY UNSPECIFIED
     Route: 041
     Dates: start: 20101117, end: 20101119
  4. SAXIZON [Concomitant]
     Dosage: 500 MG/DAY, FREQUENCY UNCPECIFIED
     Dates: start: 20101125, end: 20101127
  5. SOLITA T [Concomitant]
     Dosage: 500 ML, FREQUENCY UNSPECIFIED
     Route: 042
     Dates: start: 20101116, end: 20101124
  6. GASTER [Concomitant]
     Dosage: (20) 1A, UNITS, FREQUENCY UNSPECIFIED
     Route: 042
     Dates: start: 20101116, end: 20101124
  7. VITAMEDIN INTRAVENOUS [Concomitant]
     Dosage: UNK
     Route: 042
     Dates: start: 20101116, end: 20101124
  8. HUMALIN [Concomitant]
     Dosage: UNK
     Route: 042
     Dates: start: 20101116, end: 20101124
  9. MEROPENEM [Concomitant]
     Dosage: (0.5) IV 3X
     Route: 042
     Dates: start: 20101116, end: 20101123
  10. DEFERASIROX [Concomitant]
     Dosage: 1000 MG, 1X/DAY
     Dates: start: 20101117, end: 20101119
  11. AMBISOME [Concomitant]
     Dosage: UNK
     Route: 041
     Dates: start: 20101117

REACTIONS (1)
  - VISUAL ACUITY REDUCED [None]
